FAERS Safety Report 5752226-2 (Version None)
Quarter: 2008Q2

REPORT INFORMATION
  Report Type: 
  Country: None (occurrence: None)
  Receive Date: 20080529
  Receipt Date: 20080519
  Transmission Date: 20081010
  Serious: Yes (Other)
  Sender: FDA-Public Use
  Company Number: US-JNJFOC-20060602967

PATIENT
  Age: 75 Year
  Sex: Female

DRUGS (3)
  1. ARESTIN [Suspect]
     Indication: PERIODONTITIS
     Route: 004
  2. TOBRAMYCIN [Suspect]
     Indication: DRUG USE FOR UNKNOWN INDICATION
     Route: 065
  3. MACROBID [Concomitant]
     Indication: CYSTITIS

REACTIONS (1)
  - SYSTEMIC LUPUS ERYTHEMATOSUS RASH [None]
